FAERS Safety Report 16057395 (Version 1)
Quarter: 2019Q1

REPORT INFORMATION
  Report Type: Spontaneous
  Country: US (occurrence: US)
  Receive Date: 20190311
  Receipt Date: 20190311
  Transmission Date: 20190418
  Serious: No
  Sender: FDA-Public Use
  Company Number: US-PFIZER INC-2019098913

PATIENT
  Age: 54 Year
  Sex: Female
  Weight: 58 kg

DRUGS (2)
  1. IBRANCE [Suspect]
     Active Substance: PALBOCICLIB
     Indication: BREAST CANCER METASTATIC
     Dosage: 125 MG, CYCLIC (D1-D21Q28DAYS)
     Route: 048
     Dates: start: 20190219
  2. XGEVA [Suspect]
     Active Substance: DENOSUMAB
     Dosage: UNK

REACTIONS (4)
  - Bone pain [Unknown]
  - Depressed mood [Unknown]
  - Blood calcium decreased [Unknown]
  - Fatigue [Unknown]
